FAERS Safety Report 12295306 (Version 1)
Quarter: 2016Q2

REPORT INFORMATION
  Report Type: Spontaneous
  Country: ES (occurrence: ES)
  Receive Date: 20160422
  Receipt Date: 20160422
  Transmission Date: 20160815
  Serious: Yes (Disabling, Other)
  Sender: FDA-Public Use
  Company Number: ES-INCYTE CORPORATION-2016IN002256

PATIENT
  Age: 72 Year
  Sex: Female

DRUGS (2)
  1. XARELTO [Suspect]
     Active Substance: RIVAROXABAN
     Indication: COAGULOPATHY
     Route: 065
  2. JAKAFI [Suspect]
     Active Substance: RUXOLITINIB
     Indication: MYELOFIBROSIS
     Dosage: 5 MG, BID
     Route: 048
     Dates: start: 20160323

REACTIONS (4)
  - Drug interaction [Unknown]
  - Haemarthrosis [Unknown]
  - Chondrocalcinosis pyrophosphate [Unknown]
  - Chondrocalcinosis [Unknown]

NARRATIVE: CASE EVENT DATE: 20160405
